FAERS Safety Report 7655924-9 (Version None)
Quarter: 2011Q3

REPORT INFORMATION
  Report Type: 
  Country: None (occurrence: None)
  Receive Date: 20110804
  Receipt Date: 20110804
  Transmission Date: 20111222
  Serious: Yes (Hospitalization)
  Sender: FDA-Public Use
  Company Number: None

PATIENT
  Age: 62 Year
  Sex: Male
  Weight: 86.182 kg

DRUGS (1)
  1. ZOLPIDEM [Suspect]
     Indication: INSOMNIA
     Dosage: 1 TAB AT BEDTIME
     Route: 048
     Dates: start: 20110531, end: 20110805

REACTIONS (3)
  - DIZZINESS [None]
  - ASTHENIA [None]
  - ATRIAL FIBRILLATION [None]
